FAERS Safety Report 24345898 (Version 1)
Quarter: 2024Q3

REPORT INFORMATION
  Report Type: Report from Study
  Country: ES (occurrence: ES)
  Receive Date: 20240920
  Receipt Date: 20240920
  Transmission Date: 20241017
  Serious: Yes (Hospitalization)
  Sender: TEVA
  Company Number: None

PATIENT
  Age: 37 Year
  Sex: Female
  Weight: 77 kg

DRUGS (1)
  1. CYCLOSPORINE [Suspect]
     Active Substance: CYCLOSPORINE
     Indication: Dermatitis atopic
     Dosage: 100 MG EVERY 12 HOURS, CYCLOSPORINE (406A)
     Route: 048
     Dates: start: 20211004, end: 20211111

REACTIONS (1)
  - Mastoiditis [Recovered/Resolved]

NARRATIVE: CASE EVENT DATE: 20211111
